FAERS Safety Report 13686884 (Version 1)
Quarter: 2017Q2

REPORT INFORMATION
  Report Type: Other
  Country: SE (occurrence: SE)
  Receive Date: 20170623
  Receipt Date: 20170623
  Transmission Date: 20170830
  Serious: Yes (Other)
  Sender: FDA-Public Use
  Company Number: SE-GE HEALTHCARE LIFE SCIENCES-2017CSU001751

PATIENT

DRUGS (3)
  1. OMNIPAQUE [Suspect]
     Active Substance: IOHEXOL
     Dosage: UNK
  2. OMNIPAQUE [Suspect]
     Active Substance: IOHEXOL
     Indication: PRODUCT USED FOR UNKNOWN INDICATION
     Dosage: 25 ML, SINGLE
     Route: 048
     Dates: start: 20170419, end: 20170419
  3. OMNIPAQUE [Suspect]
     Active Substance: IOHEXOL
     Indication: PRODUCT USED FOR UNKNOWN INDICATION
     Dosage: 80 ML, SINGLE
     Route: 042
     Dates: start: 20170419, end: 20170419

REACTIONS (4)
  - Dysphonia [Unknown]
  - Dysphagia [Unknown]
  - Pharyngeal oedema [Unknown]
  - Contrast media reaction [Unknown]

NARRATIVE: CASE EVENT DATE: 20170419
